FAERS Safety Report 4685108-8 (Version None)
Quarter: 2005Q2

REPORT INFORMATION
  Report Type: 
  Country: None (occurrence: None)
  Receive Date: 20050608
  Receipt Date: 20050531
  Transmission Date: 20051028
  Serious: Yes (Life-Threatening, Hospitalization)
  Sender: FDA-Public Use
  Company Number: AU-BRISTOL-MYERS SQUIBB COMPANY-12989356

PATIENT
  Age: 63 Year
  Sex: Male

DRUGS (6)
  1. KARVEZIDE TABS 300MG/12.5MG [Suspect]
     Indication: ESSENTIAL HYPERTENSION
     Dosage: DOSAGE: 300 MG / 12.5 MG
     Route: 048
     Dates: end: 20041120
  2. METFORMIN HCL [Suspect]
     Indication: DIABETES MELLITUS
     Route: 048
     Dates: end: 20041120
  3. GLICLAZIDE [Suspect]
     Indication: DIABETES MELLITUS
     Route: 048
     Dates: end: 20041120
  4. ACETAMINOPHEN W/ CODEINE [Suspect]
     Route: 048
     Dates: end: 20041120
  5. RABEPRAZOLE SODIUM [Suspect]
     Indication: OESOPHAGEAL DISORDER
     Route: 048
     Dates: end: 20041120
  6. VERAPAMIL HCL [Suspect]
     Route: 048
     Dates: end: 20041120

REACTIONS (5)
  - CIRCULATORY COLLAPSE [None]
  - HYPOTENSION [None]
  - LACTIC ACIDOSIS [None]
  - LOSS OF CONSCIOUSNESS [None]
  - RENAL FAILURE ACUTE [None]
